FAERS Safety Report 12626705 (Version 3)
Quarter: 2018Q3

REPORT INFORMATION
  Report Type: Spontaneous
  Country: US (occurrence: US)
  Receive Date: 20160805
  Receipt Date: 20180716
  Transmission Date: 20181010
  Serious: No
  Sender: FDA-Public Use
  Company Number: US-VANDA PHARMACEUTICALS, INC-2016TASUS001274

PATIENT
  Age: 33 Year
  Sex: Male
  Weight: 74.83 kg

DRUGS (1)
  1. HETLIOZ [Suspect]
     Active Substance: TASIMELTEON
     Indication: NON-24-HOUR SLEEP-WAKE DISORDER
     Dosage: 20 MG, Q24 HRS; 1 HR BEFORE BED
     Route: 048
     Dates: start: 201605, end: 201706

REACTIONS (3)
  - Somnolence [Recovering/Resolving]
  - Drug effect decreased [Unknown]
  - Insomnia [Recovering/Resolving]

NARRATIVE: CASE EVENT DATE: 201606
